FAERS Safety Report 17397543 (Version 1)
Quarter: 2020Q1

REPORT INFORMATION
  Report Type: Spontaneous
  Country: US (occurrence: US)
  Receive Date: 20200210
  Receipt Date: 20200210
  Transmission Date: 20200409
  Serious: No
  Sender: FDA-Public Use
  Company Number: US-ASTRAZENECA-2020SE16157

PATIENT
  Sex: Male
  Weight: 7.5 kg

DRUGS (3)
  1. SYNAGIS [Suspect]
     Active Substance: PALIVIZUMAB
     Indication: LOW BIRTH WEIGHT BABY
     Dosage: 150MG/ML EVERY FOUR WEEKS
     Route: 030
     Dates: start: 20191111
  2. VITAMIN D [Concomitant]
     Active Substance: VITAMIN D NOS
  3. FAMOTIDINE. [Concomitant]
     Active Substance: FAMOTIDINE

REACTIONS (3)
  - Dermatitis diaper [Unknown]
  - Nasal congestion [Unknown]
  - Diarrhoea [Unknown]
